FAERS Safety Report 21556664 (Version 1)
Quarter: 2022Q4

REPORT INFORMATION
  Report Type: Spontaneous
  Country: JP (occurrence: JP)
  Receive Date: 20221104
  Receipt Date: 20221104
  Transmission Date: 20230113
  Serious: Yes (Other)
  Sender: FDA-Public Use
  Company Number: JP-dspharma-2021DSP017548AA

PATIENT
  Sex: Male

DRUGS (4)
  1. LATUDA [Suspect]
     Active Substance: LURASIDONE HYDROCHLORIDE
     Indication: Hallucination, auditory
     Dosage: 20 MG, QD
     Route: 048
     Dates: start: 202108
  2. LATUDA [Suspect]
     Active Substance: LURASIDONE HYDROCHLORIDE
     Dosage: 60 MG, QD
     Route: 048
     Dates: start: 202109
  3. BIPERIDEN HYDROCHLORIDE [Concomitant]
     Active Substance: BIPERIDEN HYDROCHLORIDE
     Dosage: UNK
     Route: 048
     Dates: start: 202108, end: 202112
  4. CERCINE [Concomitant]
     Active Substance: DIAZEPAM
     Dosage: 5 MG, QD
     Route: 048

REACTIONS (8)
  - Water intoxication [Unknown]
  - Salivary hypersecretion [Recovering/Resolving]
  - Feeling abnormal [Unknown]
  - Thirst [Unknown]
  - Polydipsia [Unknown]
  - Weight increased [Unknown]
  - Poriomania [Recovering/Resolving]
  - Off label use [Unknown]
